FAERS Safety Report 7822232-2 (Version None)
Quarter: 2011Q4

REPORT INFORMATION
  Report Type: 
  Country: None (occurrence: None)
  Receive Date: 20111018
  Receipt Date: 20111007
  Transmission Date: 20120403
  Serious: Yes (Hospitalization)
  Sender: FDA-Public Use
  Company Number: US-ELI_LILLY_AND_COMPANY-US201110001678

PATIENT
  Sex: Male

DRUGS (4)
  1. HUMALOG [Suspect]
     Indication: TYPE 2 DIABETES MELLITUS
     Dosage: UNK, PRN
     Dates: start: 20101001
  2. HUMALOG [Suspect]
     Dosage: UNK, PRN
     Dates: start: 20101001
  3. METFORMIN HCL [Concomitant]
     Dosage: UNK
  4. HUMALOG [Suspect]
     Dosage: UNK, PRN
     Dates: start: 20101001

REACTIONS (2)
  - BLOOD GLUCOSE INCREASED [None]
  - DRUG DOSE OMISSION [None]
